FAERS Safety Report 24752721 (Version 1)
Quarter: 2024Q4

REPORT INFORMATION
  Report Type: Spontaneous
  Country: US (occurrence: US)
  Receive Date: 20241219
  Receipt Date: 20241219
  Transmission Date: 20250114
  Serious: Yes (Hospitalization)
  Sender: AMGEN
  Company Number: US-AMGEN-USASP2024245204

PATIENT
  Age: 64 Year
  Sex: Female

DRUGS (1)
  1. PREDNISONE [Suspect]
     Active Substance: PREDNISONE
     Indication: Thrombotic thrombocytopenic purpura
     Dosage: 1 MILLIGRAM/KILOGRAM, QD
     Route: 048

REACTIONS (4)
  - Delirium [Unknown]
  - Mental status changes [Unknown]
  - Microangiopathy [Unknown]
  - Off label use [Unknown]
